FAERS Safety Report 24398874 (Version 1)
Quarter: 2024Q4

REPORT INFORMATION
  Report Type: Spontaneous
  Country: TR (occurrence: TR)
  Receive Date: 20241004
  Receipt Date: 20241004
  Transmission Date: 20250114
  Serious: Yes (Death, Other)
  Sender: BIOGEN
  Company Number: TR-BIOGEN-2024BI01284800

PATIENT
  Age: 1 Year
  Sex: Male
  Weight: 6 kg

DRUGS (1)
  1. SPINRAZA [Suspect]
     Active Substance: NUSINERSEN
     Indication: Spinal muscular atrophy
     Dosage: 2.4MG/ML - 6 DOSES (TOTAL)
     Route: 050
     Dates: start: 20240711, end: 20240903

REACTIONS (4)
  - Pneumonia [Fatal]
  - Pneumothorax [Fatal]
  - Cardiac arrest [Fatal]
  - Urinary tract infection [Fatal]

NARRATIVE: CASE EVENT DATE: 20240714
